FAERS Safety Report 4895876-8 (Version None)
Quarter: 2006Q1

REPORT INFORMATION
  Report Type: 
  Country: None (occurrence: None)
  Receive Date: 20060125
  Receipt Date: 20040712
  Transmission Date: 20060701
  Serious: Yes (Hospitalization)
  Sender: FDA-Public Use
  Company Number: FR_031203341

PATIENT
  Age: 70 Year
  Sex: Male
  Weight: 73 kg

DRUGS (3)
  1. VANCOMYCIN [Suspect]
     Dosage: 2 G/DAY IV
     Route: 042
     Dates: start: 20031015, end: 20031029
  2. ZOVIRAX [Concomitant]
  3. GENTAMICIN SULFATE [Concomitant]

REACTIONS (1)
  - RENAL FAILURE ACUTE [None]
